FAERS Safety Report 10092478 (Version 1)
Quarter: 2014Q2

REPORT INFORMATION
  Report Type: Spontaneous
  Country: US (occurrence: US)
  Receive Date: 20140421
  Receipt Date: 20140421
  Transmission Date: 20141212
  Serious: No
  Sender: FDA-Public Use
  Company Number: US-SANOFI-AVENTIS-2013SA032597

PATIENT
  Age: 89 Year
  Sex: Female

DRUGS (1)
  1. ALLEGRA [Suspect]
     Indication: URTICARIA
     Dosage: TAKEN FROM: COUPLE OF MONTHS

REACTIONS (8)
  - Arthritis [Unknown]
  - Pain [Unknown]
  - Drug dose omission [Unknown]
  - Drug ineffective [Unknown]
  - Nasopharyngitis [Unknown]
  - Hearing impaired [Unknown]
  - Dizziness [Unknown]
  - Headache [Unknown]
